FAERS Safety Report 8995929 (Version 1)
Quarter: 2013Q1

REPORT INFORMATION
  Report Type: Report from Study
  Country: AU (occurrence: AU)
  Receive Date: 20130103
  Receipt Date: 20130103
  Transmission Date: 20140127
  Serious: Yes (Hospitalization)
  Sender: FDA-Public Use
  Company Number: AU-BRISTOL-MYERS SQUIBB COMPANY-15231483

PATIENT
  Age: 77 Year
  Sex: Male

DRUGS (13)
  1. DASATINIB [Suspect]
     Indication: PROSTATE CANCER
     Dosage: NO OF COURSE:1
     Route: 048
     Dates: start: 20100729
  2. DOCETAXEL [Suspect]
     Indication: PROSTATE CANCER
     Dosage: NO OF COURSE:1
     Route: 042
     Dates: start: 20100729, end: 20100729
  3. PREDNISONE [Suspect]
     Indication: PROSTATE CANCER
     Dosage: NO OF COURSE:1
     Route: 048
     Dates: start: 20100729
  4. LIPITOR [Concomitant]
     Indication: HYPERCHOLESTEROLAEMIA
     Route: 048
     Dates: start: 1990
  5. MONOPLUS [Concomitant]
     Indication: HYPERTENSION
     Dosage: DF=TABS
     Route: 048
     Dates: start: 1990
  6. ZYLOPRIM [Concomitant]
     Indication: GOUT
     Dosage: DF=100MG TABS
     Route: 048
     Dates: start: 1959
  7. PANADOL [Concomitant]
     Indication: PAIN
     Dosage: DF=TABS
     Route: 048
     Dates: start: 20100701
  8. SOMAC [Concomitant]
     Indication: DYSPEPSIA
     Route: 048
     Dates: start: 20100701
  9. CLARATYNE [Concomitant]
     Indication: SEASONAL ALLERGY
     Dosage: DF=TAB
     Route: 048
     Dates: start: 1995
  10. ZOLADEX [Concomitant]
     Indication: PROSTATE CANCER
     Route: 058
     Dates: start: 20090830
  11. ZOFRAN [Concomitant]
     Indication: NAUSEA
     Route: 048
     Dates: start: 20100721, end: 20100727
  12. MOVICOL [Concomitant]
     Indication: CONSTIPATION
     Dosage: DF=SACHET?1JUL-11JUL10?21JUL-27JUL10
     Route: 048
     Dates: start: 20100701, end: 20100727
  13. CALTRATE [Concomitant]
     Indication: MINERAL SUPPLEMENTATION
     Dosage: CALTRATE PLUS?DF=TABS
     Route: 048
     Dates: start: 20100730

REACTIONS (3)
  - Nausea [Recovered/Resolved]
  - Vomiting [Recovered/Resolved]
  - Dehydration [Recovered/Resolved]
